FAERS Safety Report 5909923-5 (Version None)
Quarter: 2008Q4

REPORT INFORMATION
  Report Type: 
  Country: None (occurrence: None)
  Receive Date: 20081006
  Receipt Date: 20081006
  Transmission Date: 20090506
  Serious: Yes (Hospitalization)
  Sender: FDA-Public Use
  Company Number: None

PATIENT
  Sex: Female
  Weight: 109 kg

DRUGS (2)
  1. XELODA [Suspect]
     Dosage: 1750 MG
  2. ELOXATIN [Suspect]
     Dosage: 108 MG

REACTIONS (4)
  - BODY TEMPERATURE INCREASED [None]
  - HYPOTENSION [None]
  - MICTURITION URGENCY [None]
  - POLLAKIURIA [None]
